FAERS Safety Report 4882133-9 (Version None)
Quarter: 2006Q1

REPORT INFORMATION
  Report Type: 
  Country: None (occurrence: None)
  Receive Date: 20060117
  Receipt Date: 20051005
  Transmission Date: 20060701
  Serious: Yes (Hospitalization)
  Sender: FDA-Public Use
  Company Number: US-MERCK-0510USA04183

PATIENT
  Age: 44 Year
  Sex: Female
  Weight: 81 kg

DRUGS (2)
  1. VIOXX [Suspect]
     Indication: BACK PAIN
     Route: 048
     Dates: start: 20000101, end: 20020101
  2. SOMA [Concomitant]
     Route: 065

REACTIONS (4)
  - BACK PAIN [None]
  - DEEP VEIN THROMBOSIS [None]
  - HAEMATURIA [None]
  - INTERVERTEBRAL DISC DISORDER [None]
